FAERS Safety Report 6508890-3 (Version None)
Quarter: 2009Q4

REPORT INFORMATION
  Report Type: 
  Country: None (occurrence: None)
  Receive Date: 20091221
  Receipt Date: 20090810
  Transmission Date: 20100525
  Serious: No
  Sender: FDA-Public Use
  Company Number: US-ASTRAZENECA-2009SE07594

PATIENT
  Age: 56 Year
  Sex: Female
  Weight: 61 kg

DRUGS (6)
  1. CRESTOR [Suspect]
     Indication: HYPERCHOLESTEROLAEMIA
     Route: 048
     Dates: start: 20090805
  2. CYMBALTA [Concomitant]
     Indication: DEPRESSION
  3. LYRICA [Concomitant]
     Indication: DEPRESSION
  4. KLONOPIN [Concomitant]
  5. ZYRTEC [Concomitant]
     Indication: MULTIPLE ALLERGIES
  6. RHINOCORT AQUA NASAL SPRAY [Concomitant]
     Indication: MULTIPLE ALLERGIES

REACTIONS (5)
  - ABDOMINAL PAIN [None]
  - ANXIETY [None]
  - ARTHRALGIA [None]
  - CONSTIPATION [None]
  - HEADACHE [None]
